FAERS Safety Report 21553245 (Version 1)
Quarter: 2022Q4

REPORT INFORMATION
  Report Type: Spontaneous
  Country: US (occurrence: US)
  Receive Date: 20221104
  Receipt Date: 20221104
  Transmission Date: 20230113
  Serious: No
  Sender: FDA-Public Use
  Company Number: US-REDHILL-2021RDH00211

PATIENT
  Sex: Male

DRUGS (1)
  1. MOVANTIK [Suspect]
     Active Substance: NALOXEGOL OXALATE
     Indication: Product used for unknown indication
     Dosage: UNK ^SAMPLE^
     Route: 048

REACTIONS (5)
  - Hypoaesthesia oral [Unknown]
  - Groin pain [Unknown]
  - Abdominal pain [Not Recovered/Not Resolved]
  - Pain [Unknown]
  - Withdrawal syndrome [Unknown]
